FAERS Safety Report 9801993 (Version 2)
Quarter: 2014Q1

REPORT INFORMATION
  Report Type: Spontaneous
  Country: IL (occurrence: IL)
  Receive Date: 20140107
  Receipt Date: 20140213
  Transmission Date: 20141002
  Serious: Yes (Disabling)
  Sender: FDA-Public Use
  Company Number: IL-CELGENEUS-082-20785-13124620

PATIENT
  Age: 11 Year
  Sex: Male
  Weight: 55 kg

DRUGS (5)
  1. THALIDOMIDE [Suspect]
     Indication: EPENDYMOMA
     Dosage: 350 MILLIGRAM
     Route: 048
     Dates: start: 20131013, end: 20131212
  2. LOSEC [Concomitant]
     Indication: GASTROOESOPHAGEAL REFLUX DISEASE
     Dosage: 40 MILLIGRAM
     Route: 065
  3. VP16 [Concomitant]
     Indication: EPENDYMOMA
     Dosage: 50 MILLIGRAM
     Route: 065
  4. CYTOXAN [Concomitant]
     Indication: EPENDYMOMA
     Dosage: 50 MILLIGRAM
     Route: 065
  5. CELCOX [Concomitant]
     Indication: EPENDYMOMA
     Dosage: 400 MILLIGRAM
     Route: 065

REACTIONS (1)
  - Ependymoma [Not Recovered/Not Resolved]
